FAERS Safety Report 15718444 (Version 1)
Quarter: 2018Q4

REPORT INFORMATION
  Report Type: Spontaneous
  Country: US (occurrence: US)
  Receive Date: 20181213
  Receipt Date: 20181213
  Transmission Date: 20190205
  Serious: Yes (Hospitalization)
  Sender: FDA-Public Use
  Company Number: None

PATIENT
  Age: 54 Year
  Sex: Female
  Weight: 64.8 kg

DRUGS (8)
  1. POTASSIUM CHLORIDE. [Concomitant]
     Active Substance: POTASSIUM CHLORIDE
  2. FLUOROURACIL. [Concomitant]
     Active Substance: FLUOROURACIL
  3. OMEPRAZOLE. [Concomitant]
     Active Substance: OMEPRAZOLE
  4. SENNOSIDE [Concomitant]
     Active Substance: SENNOSIDES
  5. CAPECITABINE. [Suspect]
     Active Substance: CAPECITABINE
     Indication: OESOPHAGEAL CARCINOMA
     Route: 048
     Dates: start: 20170710, end: 20181130
  6. DOCUSATE [Concomitant]
     Active Substance: DOCUSATE
  7. SPIRONOLACTONE. [Concomitant]
     Active Substance: SPIRONOLACTONE
  8. OLANZAPINE. [Concomitant]
     Active Substance: OLANZAPINE

REACTIONS (2)
  - Palmar-plantar erythrodysaesthesia syndrome [None]
  - Unevaluable event [None]

NARRATIVE: CASE EVENT DATE: 20181130
